FAERS Safety Report 10094480 (Version 1)
Quarter: 2014Q2

REPORT INFORMATION
  Report Type: Spontaneous
  Country: US (occurrence: None)
  Receive Date: 20140421
  Receipt Date: 20140421
  Transmission Date: 20141212
  Serious: Yes (Other)
  Sender: FDA-Public Use
  Company Number: None

PATIENT
  Age: 22 Year
  Sex: Female
  Weight: 56.7 kg

DRUGS (1)
  1. RISPERIDONE 2 MG [Suspect]
     Indication: DRUG THERAPY
     Dosage: ONE PILL WHICH IS 2 MG,  ONCE DAILY, TAKEN BY MOUTH
     Route: 048
     Dates: start: 20140307, end: 20140330

REACTIONS (6)
  - Social avoidant behaviour [None]
  - Aggression [None]
  - Soliloquy [None]
  - Polymenorrhoea [None]
  - Blood prolactin increased [None]
  - Abnormal behaviour [None]
